FAERS Safety Report 4375583-0 (Version None)
Quarter: 2004Q2

REPORT INFORMATION
  Report Type: 
  Country: None (occurrence: None)
  Receive Date: 20040610
  Receipt Date: 20020703
  Transmission Date: 20050107
  Serious: Yes (Hospitalization, Disabling)
  Sender: FDA-Public Use
  Company Number: US-MERCK-0207USA00488

PATIENT
  Age: 40 Year
  Sex: Female
  Weight: 68 kg

DRUGS (28)
  1. TYLENOL [Concomitant]
     Route: 065
  2. VICODIN [Concomitant]
     Indication: BACK INJURY
     Route: 065
  3. AMOXICILLIN [Concomitant]
     Route: 065
  4. ASPIRIN [Concomitant]
     Route: 065
  5. TENORMIN [Concomitant]
     Route: 065
     Dates: start: 20010604
  6. ZITHROMAX [Concomitant]
     Route: 065
  7. WELLBUTRIN [Concomitant]
     Route: 065
  8. CELEXA [Concomitant]
     Route: 065
     Dates: end: 20011101
  9. PLAVIX [Concomitant]
     Route: 065
  10. BENADRYL [Concomitant]
     Indication: INSOMNIA
     Route: 065
  11. PREMARIN [Concomitant]
     Route: 065
  12. NEURONTIN [Concomitant]
     Route: 065
  13. GLUCOSAMINE [Concomitant]
     Route: 065
  14. HYPERICIN [Concomitant]
     Route: 065
  15. IBUPROFEN [Concomitant]
     Route: 065
  16. CLARITIN [Concomitant]
     Route: 065
  17. ATIVAN [Concomitant]
     Route: 065
     Dates: end: 20010701
  18. MECLIZINE [Concomitant]
     Route: 065
  19. SKELAXIN [Concomitant]
     Indication: BACK INJURY
     Route: 065
  20. UNIVASC [Concomitant]
     Indication: HYPERTENSION
     Route: 065
     Dates: start: 20010611, end: 20010701
  21. NAPROXEN [Concomitant]
     Route: 065
  22. RANITIDINE [Concomitant]
     Indication: GASTROOESOPHAGEAL REFLUX DISEASE
     Route: 065
     Dates: end: 20010701
  23. VIOXX [Suspect]
     Indication: BACK PAIN
     Route: 048
     Dates: start: 20001101, end: 20010707
  24. VIOXX [Suspect]
     Indication: ARTHRITIS
     Route: 048
     Dates: start: 20001101, end: 20010707
  25. TEMAZEPAM [Concomitant]
     Indication: ANXIETY
     Route: 065
  26. TRAZODONE HYDROCHLORIDE [Concomitant]
     Route: 065
  27. EFFEXOR XR [Concomitant]
     Indication: DEPRESSION
     Route: 065
  28. AMBIEN [Concomitant]
     Route: 065

REACTIONS (12)
  - ADVERSE EVENT [None]
  - BLOOD TESTOSTERONE DECREASED [None]
  - ENCEPHALITIS VIRAL [None]
  - HYPERTENSION [None]
  - HYPONATRAEMIA [None]
  - JOINT SPRAIN [None]
  - MENTAL DISORDER [None]
  - OTITIS MEDIA [None]
  - TEMPOROMANDIBULAR JOINT SYNDROME [None]
  - TRANSIENT ISCHAEMIC ATTACK [None]
  - TRI-IODOTHYRONINE FREE INCREASED [None]
  - VERTIGO [None]
